FAERS Safety Report 12217797 (Version 1)
Quarter: 2016Q1

REPORT INFORMATION
  Report Type: Other
  Country: IN (occurrence: IN)
  Receive Date: 20160329
  Receipt Date: 20160329
  Transmission Date: 20160526
  Serious: Yes (Hospitalization)
  Sender: FDA-Public Use
  Company Number: IN-DEP_13850_2016

PATIENT
  Age: 58 Year
  Sex: Male

DRUGS (11)
  1. FLUOXETINE [Suspect]
     Active Substance: FLUOXETINE HYDROCHLORIDE
     Indication: OBSESSIVE-COMPULSIVE DISORDER
  2. MIDAZOLAM [Concomitant]
     Active Substance: MIDAZOLAM\MIDAZOLAM HYDROCHLORIDE
     Indication: ANALGESIC THERAPY
     Dosage: FENTANYL-MIDAZOLAM DRIP WAS TAPERED IN PREPARATION FOR EXTUBATION
  3. HYPOGLYCEMIA DRUGS [Concomitant]
     Indication: TYPE 2 DIABETES MELLITUS
     Dosage: DF
     Route: 048
  4. FLUVOXAMINE [Suspect]
     Active Substance: FLUVOXAMINE
     Indication: CONDITION AGGRAVATED
  5. FENTANYL. [Suspect]
     Active Substance: FENTANYL
     Indication: SEDATION
     Dosage: DF
  6. FENTANYL. [Suspect]
     Active Substance: FENTANYL
     Indication: ANALGESIC THERAPY
     Dosage: FENTANYL-MIDAZOLAM DRIP WAS TAPERED IN PREPARATION FOR EXTUBATION
  7. LINEZOLID. [Suspect]
     Active Substance: LINEZOLID
     Indication: ANTIBIOTIC PROPHYLAXIS
     Route: 042
  8. FLUVOXAMINE [Suspect]
     Active Substance: FLUVOXAMINE
     Indication: OBSESSIVE-COMPULSIVE DISORDER
  9. MIDAZOLAM [Concomitant]
     Active Substance: MIDAZOLAM\MIDAZOLAM HYDROCHLORIDE
     Indication: SEDATION
     Dosage: DF
  10. SERTRALINE [Suspect]
     Active Substance: SERTRALINE HYDROCHLORIDE
     Indication: OBSESSIVE-COMPULSIVE DISORDER
  11. SERTRALINE [Suspect]
     Active Substance: SERTRALINE HYDROCHLORIDE
     Indication: CONDITION AGGRAVATED

REACTIONS (6)
  - Coronary artery disease [Unknown]
  - Pulmonary oedema [Recovered/Resolved]
  - Dizziness [Recovered/Resolved]
  - Serotonin syndrome [Recovered/Resolved]
  - Decreased appetite [Recovered/Resolved]
  - Drug interaction [Recovered/Resolved]
